FAERS Safety Report 9008980 (Version 1)
Quarter: 2013Q1

REPORT INFORMATION
  Report Type: Spontaneous
  Country: BR (occurrence: BR)
  Receive Date: 20130111
  Receipt Date: 20130111
  Transmission Date: 20140127
  Serious: Yes (Other)
  Sender: FDA-Public Use
  Company Number: BR-ASTRAZENECA-2012SE77217

PATIENT
  Age: 56 Year
  Sex: Male
  Weight: 57 kg

DRUGS (7)
  1. SEROQUEL [Suspect]
     Indication: SELF INJURIOUS BEHAVIOUR
     Route: 048
     Dates: start: 2006, end: 2012
  2. NEOZINE [Concomitant]
     Route: 048
  3. GEODON [Concomitant]
     Route: 048
  4. RISPERIDONE [Concomitant]
     Route: 048
  5. HIDANTAL [Concomitant]
     Dosage: THREE TIMES A DAY
     Route: 048
  6. LEXAPRO [Concomitant]
     Route: 048
  7. HALDOL [Concomitant]
     Route: 048

REACTIONS (7)
  - Intentional self-injury [Not Recovered/Not Resolved]
  - Nervousness [Not Recovered/Not Resolved]
  - Salivary hypersecretion [Unknown]
  - Malaise [Not Recovered/Not Resolved]
  - Screaming [Not Recovered/Not Resolved]
  - Weight increased [Not Recovered/Not Resolved]
  - Off label use [Recovered/Resolved]
